FAERS Safety Report 21332891 (Version 1)
Quarter: 2022Q3

REPORT INFORMATION
  Report Type: Spontaneous
  Country: IT (occurrence: IT)
  Receive Date: 20220914
  Receipt Date: 20220914
  Transmission Date: 20221027
  Serious: Yes (Other)
  Sender: FDA-Public Use
  Company Number: IT-NOVARTISPH-NVSC2022IT203934

PATIENT
  Age: 4 Year
  Sex: Female

DRUGS (2)
  1. CLARITHROMYCIN [Suspect]
     Active Substance: CLARITHROMYCIN
     Indication: Bronchitis
     Dosage: UNK
     Route: 048
  2. TOSUFLOXACIN [Suspect]
     Active Substance: TOSUFLOXACIN
     Indication: Bronchitis
     Dosage: UNK
     Route: 048

REACTIONS (3)
  - Neutropenia [Unknown]
  - Viral infection [Unknown]
  - Product use issue [Unknown]
